FAERS Safety Report 19494652 (Version 1)
Quarter: 2021Q3

REPORT INFORMATION
  Report Type: Spontaneous
  Country: IT (occurrence: IT)
  Receive Date: 20210706
  Receipt Date: 20210706
  Transmission Date: 20211014
  Serious: Yes (Hospitalization, Other)
  Sender: FDA-Public Use
  Company Number: IT-AUROBINDO-AUR-APL-2019-051565

PATIENT
  Age: 64 Year
  Sex: Male

DRUGS (5)
  1. ZEVALIN [Suspect]
     Active Substance: IBRITUMOMAB TIUXETAN
     Dosage: UNK
     Route: 065
  2. MELPHALAN. [Suspect]
     Active Substance: MELPHALAN
     Indication: STEM CELL TRANSPLANT
     Dosage: UNK
     Route: 065
  3. YTTRIUM (90 Y) CHLORIDE [Suspect]
     Active Substance: YTTRIUM CHLORIDE Y-90
     Indication: FOLLICULAR LYMPHOMA
     Dosage: UNK
     Route: 065
  4. ZEVALIN [Suspect]
     Active Substance: IBRITUMOMAB TIUXETAN
     Indication: FOLLICULAR LYMPHOMA
     Dosage: DOSE UNIT:1.2 MILLICURIES PER KILOGRAM
     Route: 042
     Dates: start: 200803, end: 200803
  5. ZEVALIN [Suspect]
     Active Substance: IBRITUMOMAB TIUXETAN
     Indication: NON-HODGKIN^S LYMPHOMA
     Dosage: DOSE UNIT:1.2 MILLICURIES PER KILOGRAM
     Route: 042
     Dates: start: 200803, end: 200803

REACTIONS (3)
  - Febrile neutropenia [Recovered/Resolved]
  - Immune reconstitution inflammatory syndrome [Unknown]
  - Bronchopulmonary aspergillosis [Recovering/Resolving]

NARRATIVE: CASE EVENT DATE: 2008
